FAERS Safety Report 7046190-6 (Version None)
Quarter: 2010Q4

REPORT INFORMATION
  Report Type: 
  Country: None (occurrence: None)
  Receive Date: 20101014
  Receipt Date: 20101006
  Transmission Date: 20110411
  Serious: Yes (Other)
  Sender: FDA-Public Use
  Company Number: US-JNJCH-2010023159

PATIENT
  Age: 97 Year
  Sex: Female
  Weight: 45.4 kg

DRUGS (1)
  1. BENADRYL [Suspect]
     Indication: HYPERSENSITIVITY
     Dosage: TEXT:TWO TABLETS EVERY 2 HOURS
     Route: 048
     Dates: start: 20100201, end: 20100201

REACTIONS (4)
  - DEMENTIA [None]
  - HALLUCINATION [None]
  - OFF LABEL USE [None]
  - PRODUCT QUALITY ISSUE [None]
